FAERS Safety Report 8111848-4 (Version None)
Quarter: 2012Q1

REPORT INFORMATION
  Report Type: 
  Country: None (occurrence: None)
  Receive Date: 20120203
  Receipt Date: 20120126
  Transmission Date: 20120608
  Serious: Yes (Life-Threatening, Other)
  Sender: FDA-Public Use
  Company Number: DE-PFIZER INC-2012025829

PATIENT
  Age: 43 Year
  Sex: Male
  Weight: 90 kg

DRUGS (5)
  1. PANTOPRAZOLE [Suspect]
     Dosage: 560 MG, UNK
     Dates: start: 20120123, end: 20120123
  2. METOPROLOL [Concomitant]
     Dosage: 475 MG, UNK
     Dates: start: 20120123, end: 20120123
  3. PARACETAMOL [Concomitant]
     Dosage: 2500 MG, UNK
     Dates: start: 20120123, end: 20120123
  4. RAMIPRIL [Concomitant]
     Dosage: 90 MG, UNK
     Dates: start: 20120123, end: 20120123
  5. ACETYLSALICYLIC ACID [Concomitant]
     Dosage: 1100 MG, UNK
     Dates: start: 20120123, end: 20120123

REACTIONS (2)
  - INTENTIONAL OVERDOSE [None]
  - SUICIDE ATTEMPT [None]
